FAERS Safety Report 8354805-5 (Version None)
Quarter: 2012Q2

REPORT INFORMATION
  Report Type: 
  Country: None (occurrence: None)
  Receive Date: 20120511
  Receipt Date: 20120502
  Transmission Date: 20120825
  Serious: Yes (Hospitalization)
  Sender: FDA-Public Use
  Company Number: US-ELI_LILLY_AND_COMPANY-US201205002444

PATIENT
  Sex: Female
  Weight: 113.38 kg

DRUGS (21)
  1. LACTULOSE [Concomitant]
     Indication: CONSTIPATION
     Dosage: UNK
  2. FLEET ENEMA MINERAL OIL [Concomitant]
     Indication: CONSTIPATION
  3. MAGNESIUM CITRATE [Concomitant]
     Indication: CONSTIPATION
     Dosage: UNK
  4. ALLOPURINOL [Concomitant]
     Dosage: UNK
  5. AMITIZA [Concomitant]
     Dosage: UNK
  6. BIFERA [Concomitant]
     Dosage: UNK
  7. METFORMIN HCL [Concomitant]
     Dosage: UNK
  8. ZAROXOLYN [Concomitant]
  9. ENBREL [Concomitant]
     Dosage: UNK
  10. KLOR-CON [Concomitant]
     Dosage: UNK
  11. GEMCITABINE HYDROCHLORIDE [Suspect]
     Indication: ADENOCARCINOMA PANCREAS
     Dosage: 1500 MG, EVERY THREE WEEKS
     Route: 042
     Dates: start: 20110630
  12. MIRALAX [Concomitant]
     Indication: CONSTIPATION
  13. CELEXA [Concomitant]
     Dosage: UNK
  14. NORTRIPTYLINE HYDROCHLORIDE [Concomitant]
     Dosage: UNK
  15. PRILOSEC [Concomitant]
     Dosage: UNK
  16. TYLENOL ARTHRITIS [Concomitant]
     Dosage: UNK
  17. CALCIUM CARBONATE [Concomitant]
     Dosage: UNK
  18. LASIX [Concomitant]
     Dosage: UNK
  19. LORAZEPAM [Concomitant]
     Dosage: UNK
  20. PROCHLORPERAZINE [Concomitant]
     Dosage: UNK
  21. DIPHENHYDRAMINE HYDROCHLORIDE [Concomitant]
     Dosage: UNK

REACTIONS (1)
  - CONSTIPATION [None]
